FAERS Safety Report 9197772 (Version 2)
Quarter: 2013Q1

REPORT INFORMATION
  Report Type: Report from Study
  Country: BR (occurrence: BR)
  Receive Date: 20130328
  Receipt Date: 20130329
  Transmission Date: 20140127
  Serious: Yes (Hospitalization)
  Sender: FDA-Public Use
  Company Number: BR-ABBOTT-13P-020-1066298-00

PATIENT
  Sex: Female

DRUGS (7)
  1. HUMIRA [Suspect]
     Indication: RHEUMATOID ARTHRITIS
     Dates: start: 201210, end: 201212
  2. METHOTREXATE [Concomitant]
     Indication: PRODUCT USED FOR UNKNOWN INDICATION
  3. PREDNISONE [Concomitant]
     Indication: PRODUCT USED FOR UNKNOWN INDICATION
  4. CHLOROQUINE [Concomitant]
     Indication: PRODUCT USED FOR UNKNOWN INDICATION
  5. UNKNOWN DRUG [Concomitant]
     Indication: GASTRIC DISORDER
  6. UNKNOWN DRUG [Concomitant]
     Indication: PROPHYLAXIS
  7. UNKNOWN DRUG REPORTED AS ANAPROGENA [Concomitant]
     Indication: PRODUCT USED FOR UNKNOWN INDICATION

REACTIONS (3)
  - Pancreatolithiasis [Not Recovered/Not Resolved]
  - Pancreatitis [Not Recovered/Not Resolved]
  - Pain [Unknown]
